FAERS Safety Report 24932846 (Version 1)
Quarter: 2025Q1

REPORT INFORMATION
  Report Type: Spontaneous
  Country: IT (occurrence: IT)
  Receive Date: 20250205
  Receipt Date: 20250205
  Transmission Date: 20250408
  Serious: Yes (Death)
  Sender: STRIDES
  Company Number: IT-STRIDES ARCOLAB LIMITED-2025SP001665

PATIENT
  Age: 66 Year
  Sex: Female

DRUGS (6)
  1. LOPERAMIDE [Suspect]
     Active Substance: LOPERAMIDE
     Indication: Prophylaxis
     Route: 065
  2. CISPLATIN [Suspect]
     Active Substance: CISPLATIN
     Indication: Salivary gland cancer stage IV
     Route: 065
     Dates: start: 201903, end: 201907
  3. DOXORUBICIN [Suspect]
     Active Substance: DOXORUBICIN
     Indication: Salivary gland cancer stage IV
     Route: 065
     Dates: start: 201903, end: 201907
  4. NERATINIB [Suspect]
     Active Substance: NERATINIB
     Indication: Salivary gland cancer stage IV
     Route: 065
  5. BICALUTAMIDE [Suspect]
     Active Substance: BICALUTAMIDE
     Indication: Salivary gland cancer stage IV
     Route: 065
     Dates: start: 202110
  6. TRIPTORELIN [Suspect]
     Active Substance: TRIPTORELIN
     Indication: Salivary gland cancer stage IV
     Route: 065
     Dates: start: 202110

REACTIONS (1)
  - Death [Fatal]
